FAERS Safety Report 6300229-1 (Version None)
Quarter: 2009Q3

REPORT INFORMATION
  Report Type: 
  Country: None (occurrence: None)
  Receive Date: 20090803
  Receipt Date: 20090720
  Transmission Date: 20100115
  Serious: Yes (Death)
  Sender: FDA-Public Use
  Company Number: ADR9862009

PATIENT
  Age: 32 Year
  Sex: Male

DRUGS (6)
  1. AMLODIPINE BESYLATE [Suspect]
     Indication: HYPERTENSION
  2. ENALAPRIL MALEATE [Concomitant]
  3. ACYCLOVIR [Concomitant]
  4. INSULIN [Concomitant]
  5. METHYLPREDNISOLONE [Concomitant]
  6. PHENYTOIN [Concomitant]

REACTIONS (25)
  - ABASIA [None]
  - ASTHENIA [None]
  - BRAIN OEDEMA [None]
  - BRAIN STEM SYNDROME [None]
  - CLUMSINESS [None]
  - CONFUSIONAL STATE [None]
  - DYSARTHRIA [None]
  - EXTENSOR PLANTAR RESPONSE [None]
  - FACIAL PALSY [None]
  - GENERAL PHYSICAL HEALTH DETERIORATION [None]
  - GRIMACING [None]
  - HEMIPARESIS [None]
  - HYPERHIDROSIS [None]
  - HYPERREFLEXIA [None]
  - HYPERTENSION [None]
  - MUSCLE SPASMS [None]
  - MUSCLE SPASTICITY [None]
  - MUSCLE TWITCHING [None]
  - MUSCULAR WEAKNESS [None]
  - NUCLEAR MAGNETIC RESONANCE IMAGING BRAIN ABNORMAL [None]
  - PUPILLARY REFLEX IMPAIRED [None]
  - SINUS TACHYCARDIA [None]
  - TACHYPNOEA [None]
  - TRISMUS [None]
  - URINARY INCONTINENCE [None]
